FAERS Safety Report 5970261-6 (Version None)
Quarter: 2008Q4

REPORT INFORMATION
  Report Type: 
  Country: None (occurrence: None)
  Receive Date: 20081126
  Receipt Date: 20081017
  Transmission Date: 20090506
  Serious: No
  Sender: FDA-Public Use
  Company Number: US-ABBOTT-08P-163-0482613-00

PATIENT
  Sex: Male
  Weight: 118.04 kg

DRUGS (4)
  1. SIMCOR [Suspect]
     Indication: BLOOD TRIGLYCERIDES INCREASED
     Dosage: 500/20 MG
     Route: 048
  2. SIMCOR [Suspect]
     Indication: BLOOD CHOLESTEROL INCREASED
     Dosage: 500/20 MG
  3. ACETYLSALICYLIC ACID SRT [Concomitant]
     Indication: PREMEDICATION
     Dosage: 1/2 HR BEFORE SIMCOR
  4. NAPROXEN SODIUM [Concomitant]
     Indication: PREMEDICATION
     Dosage: 1/2 HR BEFORE SIMCOR

REACTIONS (1)
  - FEELING HOT [None]
